FAERS Safety Report 4652612-8 (Version None)
Quarter: 2005Q2

REPORT INFORMATION
  Report Type: 
  Country: None (occurrence: None)
  Receive Date: 20050502
  Receipt Date: 20050418
  Transmission Date: 20051028
  Serious: Yes (Other)
  Sender: FDA-Public Use
  Company Number: A-CH2005-09547

PATIENT
  Age: 80 Year
  Sex: Female

DRUGS (2)
  1. TRACLEER [Suspect]
     Indication: EXTREMITY NECROSIS
     Dosage: SEE IMAGE
     Route: 048
     Dates: start: 20050401, end: 20050417
  2. TRACLEER [Suspect]
     Indication: EXTREMITY NECROSIS
     Dosage: SEE IMAGE
     Route: 048
     Dates: start: 20050418

REACTIONS (2)
  - HEPATITIS [None]
  - HEPATITIS CHOLESTATIC [None]
